FAERS Safety Report 7461593-3 (Version None)
Quarter: 2011Q2

REPORT INFORMATION
  Report Type: 
  Country: None (occurrence: None)
  Receive Date: 20110506
  Receipt Date: 20110426
  Transmission Date: 20111010
  Serious: Yes (Other)
  Sender: FDA-Public Use
  Company Number: JP-JNJFOC-20110406749

PATIENT
  Age: 29 Year
  Sex: Female

DRUGS (2)
  1. OXYCODONE [Interacting]
     Indication: PAIN
     Route: 065
  2. ITRIZOLE [Suspect]
     Indication: ORAL CANDIDIASIS
     Route: 048

REACTIONS (3)
  - DRUG INTERACTION [None]
  - VOMITING [None]
  - HALLUCINATION [None]
